FAERS Safety Report 8955639 (Version 2)
Quarter: 2012Q4

REPORT INFORMATION
  Report Type: Report from Study
  Country: ES (occurrence: ES)
  Receive Date: 20121207
  Receipt Date: 20121226
  Transmission Date: 20130627
  Serious: Yes (Other)
  Sender: FDA-Public Use
  Company Number: ES-ROCHE-1161961

PATIENT
  Age: 50 Year
  Sex: Female
  Weight: 69 kg

DRUGS (2)
  1. BEVACIZUMAB [Suspect]
     Indication: BREAST CANCER
     Route: 042
     Dates: start: 20091109, end: 20121004
  2. PALEXIA [Concomitant]
     Indication: BONE PAIN
     Route: 048
     Dates: start: 20120831

REACTIONS (3)
  - Proteinuria [Not Recovered/Not Resolved]
  - Hypertension [Recovered/Resolved with Sequelae]
  - Renal failure [Not Recovered/Not Resolved]
